FAERS Safety Report 5306046-3 (Version None)
Quarter: 2007Q2

REPORT INFORMATION
  Report Type: 
  Country: None (occurrence: None)
  Receive Date: 20070424
  Receipt Date: 20070413
  Transmission Date: 20071010
  Serious: Yes (Death, Hospitalization, Other)
  Sender: FDA-Public Use
  Company Number: FI-ELI_LILLY_AND_COMPANY-FI200704002873

PATIENT
  Age: 2 Month

DRUGS (3)
  1. ZYPREXA [Suspect]
     Dosage: UNK, UNK
     Route: 064
  2. ZOLOFT [Concomitant]
     Route: 064
     Dates: start: 20000101
  3. OXAMIN [Concomitant]
     Route: 064

REACTIONS (8)
  - CARDIAC ARREST [None]
  - DEATH [None]
  - DRUG EXPOSURE DURING PREGNANCY [None]
  - MUSCLE SPASMS [None]
  - NEONATAL COMPLICATIONS OF SUBSTANCE ABUSE [None]
  - PULMONARY HAEMORRHAGE [None]
  - PULMONARY OEDEMA [None]
  - SUDDEN INFANT DEATH SYNDROME [None]
